FAERS Safety Report 7682644-7 (Version None)
Quarter: 2011Q3

REPORT INFORMATION
  Report Type: 
  Country: None (occurrence: None)
  Receive Date: 20110815
  Receipt Date: 20110802
  Transmission Date: 20111222
  Serious: Yes (Other)
  Sender: FDA-Public Use
  Company Number: PHEH2011US00568

PATIENT
  Sex: Male

DRUGS (5)
  1. LEVOTHYROXINE SODIUM [Concomitant]
     Dosage: 125 UG
  2. NAPROXEN [Concomitant]
  3. DIOVAN [Suspect]
     Dosage: 160 MG, (ONE PER DAY)
  4. DIOVAN [Suspect]
     Dosage: 80 MG, UNK
  5. CLARITIN [Concomitant]

REACTIONS (2)
  - BLOOD PRESSURE DECREASED [None]
  - WEIGHT DECREASED [None]
